FAERS Safety Report 8926390 (Version 1)
Quarter: 2012Q4

REPORT INFORMATION
  Report Type: Report from Study
  Country: DE (occurrence: DE)
  Receive Date: 20121127
  Receipt Date: 20121127
  Transmission Date: 20130627
  Serious: Yes (Hospitalization)
  Sender: FDA-Public Use
  Company Number: DE-GLAXOSMITHKLINE-B0847160A

PATIENT
  Sex: Female
  Weight: 85 kg

DRUGS (8)
  1. LAPATINIB [Suspect]
     Indication: BREAST CANCER
     Dosage: 500MG Per day
     Route: 048
     Dates: start: 20121002
  2. MYOCET [Suspect]
     Indication: BREAST CANCER
     Dosage: 40MG Weekly
     Route: 042
     Dates: start: 20121002
  3. HERCEPTIN [Suspect]
     Indication: BREAST CANCER
     Dosage: 680MG Every 3 weeks
     Route: 042
     Dates: start: 20121002
  4. PACLITAXEL [Suspect]
     Indication: BREAST CANCER
     Dosage: 160MG Weekly
     Route: 042
     Dates: start: 20121002
  5. EMEND [Concomitant]
     Dates: start: 20121002
  6. MCP [Concomitant]
     Dates: start: 20121002
  7. ONDANSETRON [Concomitant]
     Dates: start: 20121002
  8. DEXAMETHASONE [Concomitant]
     Dates: start: 20121002

REACTIONS (1)
  - Pyrexia [Recovered/Resolved]
